FAERS Safety Report 6727990-6 (Version None)
Quarter: 2010Q2

REPORT INFORMATION
  Report Type: 
  Country: None (occurrence: None)
  Receive Date: 20100517
  Receipt Date: 20100402
  Transmission Date: 20101027
  Serious: Yes (Death, Hospitalization)
  Sender: FDA-Public Use
  Company Number: US-BAXTER-2010BH002775

PATIENT
  Age: 69 Year
  Sex: Female

DRUGS (48)
  1. HEPARIN SODIUM INJECTION [Suspect]
     Indication: HAEMODIALYSIS
     Route: 065
     Dates: start: 20080103, end: 20080103
  2. HEPARIN SODIUM INJECTION [Suspect]
     Route: 065
     Dates: start: 20080103, end: 20080103
  3. HEPARIN SODIUM INJECTION [Suspect]
     Route: 065
     Dates: start: 20080105, end: 20080105
  4. HEPARIN SODIUM INJECTION [Suspect]
     Route: 065
     Dates: start: 20080105, end: 20080105
  5. HEPARIN SODIUM INJECTION [Suspect]
     Route: 065
     Dates: start: 20080108, end: 20080108
  6. HEPARIN SODIUM INJECTION [Suspect]
     Route: 065
     Dates: start: 20080108, end: 20080108
  7. HEPARIN SODIUM INJECTION [Suspect]
     Route: 065
     Dates: start: 20080110, end: 20080110
  8. HEPARIN SODIUM INJECTION [Suspect]
     Route: 065
     Dates: start: 20080110, end: 20080110
  9. HEPARIN SODIUM INJECTION [Suspect]
     Route: 065
     Dates: start: 20080115, end: 20080115
  10. HEPARIN SODIUM INJECTION [Suspect]
     Route: 065
     Dates: start: 20080117, end: 20080117
  11. HEPARIN SODIUM INJECTION [Suspect]
     Route: 065
     Dates: start: 20080119, end: 20080119
  12. HEPARIN SODIUM INJECTION [Suspect]
     Route: 065
     Dates: start: 20080119, end: 20080119
  13. HEPARIN SODIUM INJECTION [Suspect]
     Route: 065
     Dates: start: 20080122, end: 20080122
  14. HEPARIN SODIUM INJECTION [Suspect]
     Route: 065
     Dates: start: 20080122, end: 20080122
  15. HEPARIN SODIUM INJECTION [Suspect]
     Route: 065
     Dates: start: 20080126, end: 20080126
  16. HEPARIN SODIUM INJECTION [Suspect]
     Route: 065
     Dates: start: 20080126, end: 20080126
  17. HEPARIN SODIUM INJECTION [Suspect]
     Route: 065
     Dates: start: 20080129, end: 20080129
  18. HEPARIN SODIUM INJECTION [Suspect]
     Route: 065
     Dates: start: 20080129, end: 20080129
  19. HEPARIN SODIUM INJECTION [Suspect]
     Route: 065
     Dates: start: 20080130, end: 20080130
  20. HEPARIN SODIUM INJECTION [Suspect]
     Route: 065
     Dates: start: 20080130, end: 20080130
  21. HEPARIN SODIUM INJECTION [Suspect]
     Route: 065
     Dates: start: 20080131, end: 20080131
  22. HEPARIN SODIUM INJECTION [Suspect]
     Route: 065
     Dates: start: 20080131, end: 20080131
  23. HEPARIN SODIUM INJECTION [Suspect]
     Route: 065
     Dates: start: 20080202, end: 20080202
  24. HEPARIN SODIUM INJECTION [Suspect]
     Route: 065
     Dates: start: 20080202, end: 20080202
  25. HEPARIN SODIUM INJECTION [Suspect]
     Route: 065
     Dates: start: 20080205, end: 20080205
  26. HEPARIN SODIUM INJECTION [Suspect]
     Route: 065
     Dates: start: 20080205, end: 20080205
  27. HEPARIN SODIUM INJECTION [Suspect]
     Route: 065
     Dates: start: 20080207, end: 20080207
  28. HEPARIN SODIUM INJECTION [Suspect]
     Route: 065
     Dates: start: 20080209, end: 20080209
  29. HEPARIN SODIUM INJECTION [Suspect]
     Route: 065
     Dates: start: 20080209, end: 20080209
  30. LIPITOR [Concomitant]
     Indication: DRUG USE FOR UNKNOWN INDICATION
     Route: 065
  31. CLONIDINE [Concomitant]
     Indication: DRUG USE FOR UNKNOWN INDICATION
     Route: 065
  32. PREVACID [Concomitant]
     Indication: DRUG USE FOR UNKNOWN INDICATION
     Route: 065
  33. METOPROLOL TARTRATE [Concomitant]
     Indication: DRUG USE FOR UNKNOWN INDICATION
     Route: 065
  34. PHOSLO [Concomitant]
     Indication: DRUG USE FOR UNKNOWN INDICATION
     Route: 065
  35. LANTUS [Concomitant]
     Indication: DRUG USE FOR UNKNOWN INDICATION
     Route: 065
  36. PROZAC [Concomitant]
     Indication: DRUG USE FOR UNKNOWN INDICATION
     Route: 065
  37. DOCUSATE [Concomitant]
     Indication: DRUG USE FOR UNKNOWN INDICATION
     Route: 065
  38. FAMOTIDINE [Concomitant]
     Indication: DRUG USE FOR UNKNOWN INDICATION
     Route: 065
  39. HUMALOG [Concomitant]
     Indication: DRUG USE FOR UNKNOWN INDICATION
     Route: 065
  40. LOVENOX [Concomitant]
     Indication: DRUG USE FOR UNKNOWN INDICATION
     Route: 065
  41. MANNITOL [Concomitant]
     Indication: DRUG USE FOR UNKNOWN INDICATION
     Route: 065
  42. NITROGLYCERIN [Concomitant]
     Indication: DRUG USE FOR UNKNOWN INDICATION
     Route: 065
  43. EPOGEN [Concomitant]
     Indication: DRUG USE FOR UNKNOWN INDICATION
     Route: 065
  44. BACITRACIN [Concomitant]
     Indication: DRUG USE FOR UNKNOWN INDICATION
     Route: 065
  45. DOXERCALCIFEROL [Concomitant]
     Indication: DRUG USE FOR UNKNOWN INDICATION
     Route: 065
  46. VENOFER [Concomitant]
     Indication: DRUG USE FOR UNKNOWN INDICATION
     Route: 065
  47. ACETAMINOPHEN [Concomitant]
     Indication: DRUG USE FOR UNKNOWN INDICATION
     Route: 065
  48. VANCOMYCIN [Concomitant]
     Indication: DRUG USE FOR UNKNOWN INDICATION
     Route: 065

REACTIONS (5)
  - ASTHENIA [None]
  - DYSPNOEA [None]
  - NAUSEA [None]
  - SUBDURAL HAEMATOMA [None]
  - VOMITING [None]
